FAERS Safety Report 21530567 (Version 1)
Quarter: 2022Q4

REPORT INFORMATION
  Report Type: Spontaneous
  Country: US (occurrence: None)
  Receive Date: 20221029
  Receipt Date: 20221029
  Transmission Date: 20230113
  Serious: No
  Sender: FDA-Public Use
  Company Number: None

PATIENT
  Age: 61 Year
  Sex: Female
  Weight: 99 kg

DRUGS (14)
  1. REPATHA [Suspect]
     Active Substance: EVOLOCUMAB
     Indication: Blood triglycerides
     Dosage: OTHER QUANTITY : 1 INJECTION(S);?OTHER FREQUENCY : EVERY TWO WEEKS;?
     Route: 058
  2. REPATHA [Suspect]
     Active Substance: EVOLOCUMAB
     Indication: Blood cholesterol
  3. ZETIA [Concomitant]
     Active Substance: EZETIMIBE
  4. humelog [Concomitant]
  5. JARDIANCE [Concomitant]
     Active Substance: EMPAGLIFLOZIN
  6. carvediolal [Concomitant]
  7. glimubiride [Concomitant]
  8. isosorbide mononitrate toresomide [Concomitant]
  9. LANTUS [Concomitant]
     Active Substance: INSULIN GLARGINE
  10. VITAMINS [Concomitant]
     Active Substance: VITAMINS
  11. HERBALS\TURMERIC [Concomitant]
     Active Substance: HERBALS\TURMERIC
  12. VITAMIN D [Concomitant]
     Active Substance: VITAMIN D NOS
  13. VITAMIN B [Concomitant]
     Active Substance: VITAMIN B
  14. BIOTIN [Concomitant]
     Active Substance: BIOTIN

REACTIONS (4)
  - Chest pain [None]
  - Myalgia [None]
  - Fluid retention [None]
  - Blood glucose increased [None]

NARRATIVE: CASE EVENT DATE: 20221011
